FAERS Safety Report 6042272-6 (Version None)
Quarter: 2009Q1

REPORT INFORMATION
  Report Type: 
  Country: None (occurrence: None)
  Receive Date: 20090116
  Receipt Date: 20080105
  Transmission Date: 20090719
  Serious: Yes (Death, Other)
  Sender: FDA-Public Use
  Company Number: US-PFIZER INC-2008099478

PATIENT
  Age: 76 Year
  Sex: Male
  Weight: 55.329 kg

DRUGS (19)
  1. ZOLOFT [Suspect]
     Indication: DEPRESSION
     Dosage: UNK
     Dates: start: 20070519, end: 20081018
  2. ARANESP [Concomitant]
     Indication: HAEMOGLOBIN DECREASED
     Dosage: 25 UG, UNK
  3. LUPRON [Concomitant]
     Dosage: 22.5 MG, EVERY 3 MONTHS
  4. VITAMIN D [Concomitant]
     Indication: HYPOVITAMINOSIS
     Dosage: 50000 UNK, UNK
  5. CASODEX [Concomitant]
     Indication: PROSTATE CANCER
     Dosage: 50 MG, 1X/DAY
  6. FINASTERIDE [Concomitant]
     Indication: URINARY RETENTION
     Dosage: 5 MG, 1X/DAY
  7. MULTI-VITAMINS [Concomitant]
     Dosage: UNK
  8. COLACE [Concomitant]
     Indication: CONSTIPATION
     Dosage: 200 MG, UNK
  9. FERROUS SULFATE [Concomitant]
     Indication: ANAEMIA
     Dosage: 325 MG, 2X/DAY
  10. DOXAZOSIN MESILATE [Concomitant]
     Indication: BENIGN PROSTATIC HYPERPLASIA
     Dosage: 2 MG, 1X/DAY
  11. DOXAZOSIN MESILATE [Concomitant]
     Indication: HYPERTENSION
  12. LIPITOR [Concomitant]
     Indication: DYSLIPIDAEMIA
     Dosage: 20 MG, ALTERNATE DAY
  13. SORBITOL [Concomitant]
     Indication: CONSTIPATION
     Dosage: 30 ML, 1X/DAY
  14. METHADONE [Concomitant]
     Indication: PAIN
     Dosage: 10 MG, 3X/DAY
  15. LIDODERM [Concomitant]
     Indication: PAIN
  16. SENNA [Concomitant]
     Indication: CONSTIPATION
     Dosage: UNK
  17. PAMIDRONATE DISODIUM [Concomitant]
     Indication: BONE PAIN
     Dosage: 60 MG, UNK
     Route: 042
  18. ATIVAN [Concomitant]
     Indication: ANXIETY
     Dosage: 1 MG, 4X/DAY
     Route: 048
     Dates: end: 20081017
  19. MORPHINE SULFATE [Concomitant]
     Indication: PAIN
     Dosage: 15 MG, EVERY 4 HRS
     Dates: end: 20081017

REACTIONS (11)
  - BRONCHITIS [None]
  - DEPRESSION [None]
  - DRUG LEVEL INCREASED [None]
  - HYDRONEPHROSIS [None]
  - HYPERKALAEMIA [None]
  - LIVER FUNCTION TEST ABNORMAL [None]
  - METASTASES TO LIVER [None]
  - PNEUMONIA [None]
  - PROSTATE CANCER METASTATIC [None]
  - URETERIC OBSTRUCTION [None]
  - VITAMIN D DEFICIENCY [None]
